FAERS Safety Report 23899278 (Version 2)
Quarter: 2024Q2

REPORT INFORMATION
  Report Type: Spontaneous
  Country: IN (occurrence: IN)
  Receive Date: 20240526
  Receipt Date: 20240626
  Transmission Date: 20240716
  Serious: Yes (Other)
  Sender: FDA-Public Use
  Company Number: IN-GLENMARK PHARMACEUTICALS-2024GMK090969

PATIENT

DRUGS (3)
  1. TACROLIMUS [Suspect]
     Active Substance: TACROLIMUS
     Indication: Product used for unknown indication
     Dosage: 0.12 MILLIGRAM PER KILOGRAM, QD
     Route: 065
  2. TACROLIMUS [Suspect]
     Active Substance: TACROLIMUS
     Dosage: UNK (REDUCED)
     Route: 065
  3. TACROLIMUS [Suspect]
     Active Substance: TACROLIMUS
     Dosage: UNK (REDUCED)
     Route: 065

REACTIONS (4)
  - Toxicity to various agents [Recovering/Resolving]
  - Drug level increased [Recovering/Resolving]
  - Myoclonus [Recovering/Resolving]
  - Hyperglycaemia [Recovering/Resolving]
